FAERS Safety Report 9133595 (Version 1)
Quarter: 2013Q1

REPORT INFORMATION
  Report Type: Spontaneous
  Country: US (occurrence: US)
  Receive Date: 20130301
  Receipt Date: 20130301
  Transmission Date: 20140127
  Serious: No
  Sender: FDA-Public Use
  Company Number: US-ASTRAZENECA-2013SE11766

PATIENT
  Age: 813 Month
  Sex: Female
  Weight: 61.2 kg

DRUGS (5)
  1. PRILOSEC [Suspect]
     Indication: GASTROOESOPHAGEAL REFLUX DISEASE
     Route: 048
     Dates: start: 2003
  2. PRILOSEC [Suspect]
     Indication: GASTROOESOPHAGEAL REFLUX DISEASE
     Dosage: OMEPRAZOLE
     Route: 048
     Dates: start: 2012
  3. PRILOSEC OTC [Suspect]
     Route: 048
  4. NEXIUM [Suspect]
     Indication: GASTROOESOPHAGEAL REFLUX DISEASE
     Route: 048
     Dates: start: 2011
  5. NORVASC [Concomitant]
     Indication: HYPERTENSION

REACTIONS (3)
  - Malaise [Not Recovered/Not Resolved]
  - Drug ineffective [Recovering/Resolving]
  - Intentional drug misuse [Unknown]
